FAERS Safety Report 4901707-X (Version None)
Quarter: 2006Q1

REPORT INFORMATION
  Report Type: 
  Country: None (occurrence: None)
  Receive Date: 20060206
  Receipt Date: 20051201
  Transmission Date: 20060701
  Serious: No
  Sender: FDA-Public Use
  Company Number: US-BRISTOL-MYERS SQUIBB COMPANY-13201470

PATIENT
  Age: 71 Year
  Sex: Male
  Weight: 84 kg

DRUGS (5)
  1. TAXOL [Suspect]
     Indication: MALIGNANT MELANOMA
     Dates: start: 20051201, end: 20051201
  2. ZOFRAN [Concomitant]
     Indication: PREMEDICATION
     Route: 042
  3. DECADRON PHOSPHATE [Concomitant]
     Indication: PREMEDICATION
     Route: 042
  4. FAMOTIDINE [Concomitant]
     Indication: PREMEDICATION
     Route: 042
  5. BENADRYL [Concomitant]
     Indication: PREMEDICATION
     Route: 042

REACTIONS (1)
  - EXTRAVASATION [None]
